FAERS Safety Report 5760294-7 (Version None)
Quarter: 2008Q2

REPORT INFORMATION
  Report Type: 
  Country: None (occurrence: None)
  Receive Date: 20080605
  Receipt Date: 20070809
  Transmission Date: 20081010
  Serious: Yes (Other)
  Sender: FDA-Public Use
  Company Number: US-PFIZER INC-2006122811

PATIENT
  Sex: Female

DRUGS (3)
  1. LIPITOR [Suspect]
     Dates: start: 20040114, end: 20051001
  2. NIACIN [Concomitant]
  3. NEXIUM [Concomitant]
     Route: 048

REACTIONS (7)
  - AMNESIA [None]
  - ASTHENIA [None]
  - COGNITIVE DISORDER [None]
  - DEPRESSION [None]
  - DISORIENTATION [None]
  - FATIGUE [None]
  - NEUROPATHY PERIPHERAL [None]
